FAERS Safety Report 23135707 (Version 4)
Quarter: 2024Q3

REPORT INFORMATION
  Report Type: Report from Study
  Country: US (occurrence: US)
  Receive Date: 20231101
  Receipt Date: 20240729
  Transmission Date: 20241016
  Serious: Yes (Other)
  Sender: ROCHE
  Company Number: US-ROCHE-3450273

PATIENT
  Age: 86 Year
  Sex: Female

DRUGS (4)
  1. ACTEMRA [Suspect]
     Active Substance: TOCILIZUMAB
     Indication: Giant cell arteritis
     Route: 058
     Dates: start: 202306
  2. FENOFIBRATE [Concomitant]
     Active Substance: FENOFIBRATE
  3. LISINOPRIL [Concomitant]
     Active Substance: LISINOPRIL
  4. SIMVASTATIN [Concomitant]
     Active Substance: SIMVASTATIN

REACTIONS (3)
  - Blindness [Unknown]
  - Cerebrovascular accident [Unknown]
  - Presbyopia [Not Recovered/Not Resolved]

NARRATIVE: CASE EVENT DATE: 20240301
